FAERS Safety Report 13667905 (Version 1)
Quarter: 2017Q2

REPORT INFORMATION
  Report Type: Report from Study
  Country: AR (occurrence: AR)
  Receive Date: 20170620
  Receipt Date: 20170620
  Transmission Date: 20170830
  Serious: Yes (Hospitalization)
  Sender: FDA-Public Use
  Company Number: AR-AEGERION PHARMACEUTICAL, INC-AEGR003204

PATIENT

DRUGS (1)
  1. MYALEPT [Suspect]
     Active Substance: METRELEPTIN
     Indication: CONGENITAL GENERALISED LIPODYSTROPHY
     Dosage: UNK
     Route: 058
     Dates: end: 20170510

REACTIONS (6)
  - Gastroenteritis [Recovering/Resolving]
  - Dysentery [Recovering/Resolving]
  - Acidosis [Recovering/Resolving]
  - Therapy cessation [Unknown]
  - Dehydration [Recovering/Resolving]
  - Renal failure [Recovering/Resolving]

NARRATIVE: CASE EVENT DATE: 2017
